FAERS Safety Report 8003892-2 (Version None)
Quarter: 2011Q4

REPORT INFORMATION
  Report Type: 
  Country: None (occurrence: None)
  Receive Date: 20111222
  Receipt Date: 20111212
  Transmission Date: 20120403
  Serious: Yes (Hospitalization)
  Sender: FDA-Public Use
  Company Number: JP-BAYER-2011-113387

PATIENT
  Age: 86 Year
  Sex: Female

DRUGS (10)
  1. DEPAS [Suspect]
     Indication: AUTONOMIC NERVOUS SYSTEM IMBALANCE
     Dosage: DAILY DOSE .5 MG
     Route: 048
     Dates: start: 20110601, end: 20111122
  2. PAXIL [Suspect]
     Dosage: DAILY DOSE 10 MG
     Route: 048
     Dates: start: 20110726, end: 20111122
  3. CEFAZOLIN [Concomitant]
     Dosage: UNK
     Route: 041
     Dates: start: 20111127, end: 20111205
  4. VANCOMYCIN HYCHLORIDE [Concomitant]
     Dosage: UNK
     Route: 041
     Dates: start: 20111204
  5. ZONISAMIDE [Suspect]
     Dosage: DAILY DOSE 100 MG
     Route: 048
     Dates: start: 20111004, end: 20111110
  6. TAMSULOSIN HCL [Suspect]
     Indication: NEUROGENIC BLADDER
     Dosage: DAILY DOSE .2 MG
     Route: 048
     Dates: start: 20110920, end: 20111110
  7. LEVOFLOXACIN [Concomitant]
     Dosage: UNK
     Route: 048
     Dates: start: 20111125, end: 20111127
  8. ASUNAMIN Z [Suspect]
     Dosage: UNK
     Route: 048
     Dates: start: 20101029
  9. EBRANTIL [Concomitant]
     Dosage: UNK
     Route: 048
     Dates: start: 20100101, end: 20110920
  10. ASPIRIN [Suspect]
     Dosage: DAILY DOSE 100 MG
     Route: 048
     Dates: start: 20110830, end: 20111122

REACTIONS (9)
  - DRUG ERUPTION [None]
  - ERYTHEMA [None]
  - ORAL DISCOMFORT [None]
  - PRURITUS GENERALISED [None]
  - LIP EROSION [None]
  - OROPHARYNGEAL PAIN [None]
  - PYREXIA [None]
  - LIP ULCERATION [None]
  - LIP PAIN [None]
